FAERS Safety Report 5212380-8 (Version None)
Quarter: 2006Q4

REPORT INFORMATION
  Report Type: 
  Country: None (occurrence: None)
  Receive Date: 20061130
  Receipt Date: 20060524
  Transmission Date: 20070319
  Serious: Yes (Other)
  Sender: FDA-Public Use
  Company Number: WAES 0605USA04611

PATIENT
  Age: 76 Year
  Sex: Female

DRUGS (3)
  1. FOSAMAX [Suspect]
     Dosage: 10 MG/DAILY/PO; 70 MG/WKY/PO
     Route: 048
     Dates: end: 20060301
  2. FOSAMAX [Suspect]
     Dosage: 10 MG/DAILY/PO; 70 MG/WKY/PO
     Route: 048
     Dates: start: 20020101
  3. .. [Concomitant]

REACTIONS (1)
  - OSTEONECROSIS [None]
